FAERS Safety Report 5404755-9 (Version None)
Quarter: 2007Q3

REPORT INFORMATION
  Report Type: 
  Country: None (occurrence: None)
  Receive Date: 20070801
  Receipt Date: 20070724
  Transmission Date: 20080115
  Serious: Yes (Hospitalization)
  Sender: FDA-Public Use
  Company Number: T07-JPN-02910-01

PATIENT
  Age: 90 Year
  Sex: Male

DRUGS (13)
  1. MEMANTINE HCL [Suspect]
     Indication: DEMENTIA ALZHEIMER'S TYPE
     Dates: start: 20050908, end: 20070622
  2. MEMANTINE HCL [Suspect]
     Indication: DEMENTIA ALZHEIMER'S TYPE
     Dosage: 20 MG QD PO
     Route: 048
     Dates: start: 20070629, end: 20070712
  3. MEMANTINE HCL [Suspect]
     Indication: DEMENTIA ALZHEIMER'S TYPE
     Dosage: 20 MG QD PO
     Route: 048
     Dates: start: 20070715
  4. DONEPEZIL HCL [Concomitant]
  5. AMBROXOL HYDROCHLORIDE [Concomitant]
  6. SENNA LEAF/SENNA POD [Concomitant]
  7. RANITIDINE HYDROCHLORIDE [Concomitant]
  8. TEPRENONE [Concomitant]
  9. URSODESOXYCHOLIC ACID [Concomitant]
  10. MIDODRINE HYDROCHLORIDE [Concomitant]
  11. PROPIVERINE HYDROCHLORIDE [Concomitant]
  12. MIANSERIN HYDROCHLORIDE [Concomitant]
  13. MAGNESIUM OXIDE [Concomitant]

REACTIONS (3)
  - CHOLECYSTITIS [None]
  - CHOLELITHIASIS [None]
  - HEART RATE INCREASED [None]
